FAERS Safety Report 5407243-9 (Version None)
Quarter: 2007Q3

REPORT INFORMATION
  Report Type: 
  Country: None (occurrence: None)
  Receive Date: 20070807
  Receipt Date: 20070802
  Transmission Date: 20080115
  Serious: Yes (Hospitalization)
  Sender: FDA-Public Use
  Company Number: A0668413A

PATIENT
  Age: 21 Year
  Sex: Male

DRUGS (10)
  1. PAXIL [Suspect]
     Indication: DRUG USE FOR UNKNOWN INDICATION
     Dosage: 15MG TWICE PER DAY
     Route: 048
  2. KEPPRA [Suspect]
     Dosage: 300MG TWICE PER DAY
     Route: 042
     Dates: start: 20070712
  3. FLUCONAZOLE [Suspect]
     Indication: DRUG USE FOR UNKNOWN INDICATION
     Dosage: 1.5MG FOUR TIMES PER DAY
     Route: 042
     Dates: start: 20070701
  4. NEXIUM [Suspect]
     Indication: DRUG USE FOR UNKNOWN INDICATION
     Dosage: 20MG PER DAY
     Route: 042
     Dates: start: 20070701
  5. ATIVAN [Suspect]
     Indication: AGITATION
     Route: 065
     Dates: start: 20070701
  6. CLONIDINE [Suspect]
     Indication: DRUG USE FOR UNKNOWN INDICATION
     Route: 062
  7. METHADONE HCL [Suspect]
     Route: 048
     Dates: start: 20070701
  8. DIAZEPAM [Suspect]
     Indication: AGITATION
     Route: 042
     Dates: start: 20070701
  9. PEPCID [Suspect]
     Indication: DRUG USE FOR UNKNOWN INDICATION
     Dosage: 20MG TWICE PER DAY
     Route: 042
     Dates: start: 20070701
  10. DEMEROL [Suspect]
     Indication: PAIN
     Route: 042
     Dates: start: 20070701

REACTIONS (1)
  - PANCREATITIS [None]
